FAERS Safety Report 21781971 (Version 1)
Quarter: 2022Q4

REPORT INFORMATION
  Report Type: Spontaneous
  Country: CA (occurrence: CA)
  Receive Date: 20221227
  Receipt Date: 20221227
  Transmission Date: 20230112
  Serious: Yes (Other)
  Sender: FDA-Public Use
  Company Number: CA-TEVA-2022-CA-2838970

PATIENT
  Age: 64 Year
  Sex: Male

DRUGS (8)
  1. AZATHIOPRINE [Suspect]
     Active Substance: AZATHIOPRINE
     Indication: Myositis
     Dosage: 50 MILLIGRAM DAILY;
     Route: 065
  2. AZATHIOPRINE [Suspect]
     Active Substance: AZATHIOPRINE
     Indication: Chronic graft versus host disease
  3. PREDNISONE [Suspect]
     Active Substance: PREDNISONE
     Indication: Myositis
     Dosage: 10 MILLIGRAM DAILY;
     Route: 065
  4. PREDNISONE [Suspect]
     Active Substance: PREDNISONE
     Indication: Chronic graft versus host disease
     Dosage: 80 MILLIGRAM DAILY;
     Route: 065
  5. CALCITONIN SALMON [Suspect]
     Active Substance: CALCITONIN SALMON
     Indication: Myositis
     Route: 065
  6. CALCITONIN SALMON [Suspect]
     Active Substance: CALCITONIN SALMON
     Indication: Chronic graft versus host disease
  7. PAMIDRONATE DISODIUM [Suspect]
     Active Substance: PAMIDRONATE DISODIUM
     Indication: Myositis
     Route: 065
  8. PAMIDRONATE DISODIUM [Suspect]
     Active Substance: PAMIDRONATE DISODIUM
     Indication: Chronic graft versus host disease

REACTIONS (2)
  - Hepatotoxicity [Unknown]
  - Off label use [Unknown]
